FAERS Safety Report 11908770 (Version 2)
Quarter: 2016Q1

REPORT INFORMATION
  Report Type: Spontaneous
  Country: US (occurrence: US)
  Receive Date: 20160111
  Receipt Date: 20160316
  Transmission Date: 20160526
  Serious: Yes (Hospitalization)
  Sender: FDA-Public Use
  Company Number: US-009507513-1601USA001630

PATIENT
  Sex: Male
  Weight: 104.31 kg

DRUGS (1)
  1. DIFICID [Suspect]
     Active Substance: FIDAXOMICIN
     Indication: CLOSTRIDIUM DIFFICILE COLITIS
     Dosage: UNK UNK, BID
     Route: 048
     Dates: start: 20151128, end: 20151208

REACTIONS (7)
  - Cough [Unknown]
  - Drug ineffective [Unknown]
  - Clostridium difficile colitis [Not Recovered/Not Resolved]
  - Wheezing [Unknown]
  - Rhonchi [Unknown]
  - Clostridium difficile colitis [Not Recovered/Not Resolved]
  - Clostridium difficile infection [Not Recovered/Not Resolved]

NARRATIVE: CASE EVENT DATE: 20151128
